FAERS Safety Report 7343280-5 (Version None)
Quarter: 2011Q1

REPORT INFORMATION
  Report Type: 
  Country: None (occurrence: None)
  Receive Date: 20110308
  Receipt Date: 20110308
  Transmission Date: 20110831
  Serious: Yes (Life-Threatening, Hospitalization)
  Sender: FDA-Public Use
  Company Number: None

PATIENT
  Age: 52 Year
  Sex: Female
  Weight: 80 kg

DRUGS (1)
  1. PREDNISONE [Suspect]
     Indication: ASTHMA
     Dosage: 5 MG EVERY DAY PO
     Route: 048
     Dates: start: 20110209, end: 20110210

REACTIONS (4)
  - ANXIETY [None]
  - STRIDOR [None]
  - ANAPHYLACTIC REACTION [None]
  - LARYNGEAL OEDEMA [None]
